FAERS Safety Report 7803078-8 (Version None)
Quarter: 2011Q4

REPORT INFORMATION
  Report Type: 
  Country: None (occurrence: None)
  Receive Date: 20111007
  Receipt Date: 20110926
  Transmission Date: 20120403
  Serious: Yes (Other)
  Sender: FDA-Public Use
  Company Number: US-PFIZER INC-2011228879

PATIENT
  Sex: Female

DRUGS (1)
  1. PRISTIQ [Suspect]
     Dosage: UNK

REACTIONS (7)
  - POLLAKIURIA [None]
  - METRORRHAGIA [None]
  - VISION BLURRED [None]
  - PRURITUS [None]
  - DRY MOUTH [None]
  - INSOMNIA [None]
  - HYPERHIDROSIS [None]
